FAERS Safety Report 8520238 (Version 2)
Quarter: 2013Q2

REPORT INFORMATION
  Report Type: Spontaneous
  Country: ES (occurrence: ES)
  Receive Date: 20120418
  Receipt Date: 20130410
  Transmission Date: 20140414
  Serious: Yes (Hospitalization, Other)
  Sender: FDA-Public Use
  Company Number: ES-ELI_LILLY_AND_COMPANY-ES201204004389

PATIENT
  Sex: Female

DRUGS (2)
  1. FORSTEO [Suspect]
     Indication: OSTEOPOROSIS
     Dosage: 20 UG, QD
     Route: 058
     Dates: start: 201105, end: 201111
  2. FORSTEO [Suspect]
     Dosage: 20 UG, QD
     Route: 058
     Dates: start: 201201

REACTIONS (6)
  - Arrhythmia [Unknown]
  - Loss of consciousness [Unknown]
  - Syncope [Unknown]
  - Loss of consciousness [Unknown]
  - Feeling abnormal [Unknown]
  - Pain in extremity [Unknown]
